FAERS Safety Report 22109102 (Version 1)
Quarter: 2023Q1

REPORT INFORMATION
  Report Type: Spontaneous
  Country: US (occurrence: US)
  Receive Date: 20230317
  Receipt Date: 20230317
  Transmission Date: 20230417
  Serious: No
  Sender: FDA-Public Use
  Company Number: US-SANOFI-01534475

PATIENT
  Age: 69 Year
  Sex: Male

DRUGS (3)
  1. LANTUS [Suspect]
     Active Substance: INSULIN GLARGINE
     Indication: Diabetes mellitus
     Dosage: 23 U, QD
  2. LANTUS [Suspect]
     Active Substance: INSULIN GLARGINE
     Dosage: 25-28 U, QD
  3. HUMALOG [Concomitant]
     Active Substance: INSULIN LISPRO
     Indication: Blood glucose abnormal
     Dosage: UNK, Q4H

REACTIONS (3)
  - Blood glucose increased [Not Recovered/Not Resolved]
  - Therapeutic response decreased [Unknown]
  - Intentional product misuse [Unknown]
